FAERS Safety Report 9838092 (Version 1)
Quarter: 2014Q1

REPORT INFORMATION
  Report Type: Spontaneous
  Country: IN (occurrence: IN)
  Receive Date: 20140123
  Receipt Date: 20140123
  Transmission Date: 20141002
  Serious: Yes (Other)
  Sender: FDA-Public Use
  Company Number: IN-009507513-1401IND010165

PATIENT
  Age: 57 Year
  Sex: 0

DRUGS (3)
  1. JANUVIA [Suspect]
     Dosage: 100 MG, QD
     Route: 048
  2. GLUCOMET (GLYBURIDE (+) METFORMIN HYDROCHLORIDE) [Concomitant]
     Dosage: 2, QD (2 PER DAY)
  3. VOGLI [Concomitant]
     Dosage: 2 DF, QD

REACTIONS (1)
  - Hyperchlorhydria [Not Recovered/Not Resolved]
